FAERS Safety Report 12177039 (Version 1)
Quarter: 2016Q1

REPORT INFORMATION
  Report Type: Spontaneous
  Country: US (occurrence: US)
  Receive Date: 20160314
  Receipt Date: 20160314
  Transmission Date: 20160526
  Serious: No
  Sender: FDA-Public Use
  Company Number: US-PFIZER INC-2016140078

PATIENT
  Sex: Male

DRUGS (1)
  1. LYRICA [Suspect]
     Active Substance: PREGABALIN
     Dosage: 150 MG, UNK

REACTIONS (6)
  - Peripheral swelling [Unknown]
  - Neck pain [Unknown]
  - Joint swelling [Unknown]
  - Feeling abnormal [Unknown]
  - Pain in extremity [Unknown]
  - Ear pain [Unknown]

NARRATIVE: CASE EVENT DATE: 20160229
